FAERS Safety Report 18175456 (Version 3)
Quarter: 2021Q2

REPORT INFORMATION
  Report Type: Spontaneous
  Country: US (occurrence: US)
  Receive Date: 20200820
  Receipt Date: 20210615
  Transmission Date: 20210717
  Serious: Yes (Death, Other)
  Sender: FDA-Public Use
  Company Number: US-ASTRAZENECA-2020SF04216

PATIENT
  Age: 18537 Day
  Sex: Female
  Weight: 70.8 kg

DRUGS (44)
  1. PREVACID [Suspect]
     Active Substance: LANSOPRAZOLE
     Dosage: GENERIC
     Route: 065
  2. DICYCLOMINE [Concomitant]
     Active Substance: DICYCLOMINE HYDROCHLORIDE
  3. CLONIDINE HCL [Concomitant]
     Active Substance: CLONIDINE HYDROCHLORIDE
  4. AVAPRO [Concomitant]
     Active Substance: IRBESARTAN
  5. METOPROLOL TARTRAT [Concomitant]
  6. COZAAR [Concomitant]
     Active Substance: LOSARTAN POTASSIUM
  7. TIAZAC [Concomitant]
     Active Substance: DILTIAZEM HYDROCHLORIDE
  8. OXYCODONE [Concomitant]
     Active Substance: OXYCODONE
  9. PRILOSEC OTC [Suspect]
     Active Substance: OMEPRAZOLE MAGNESIUM
     Route: 048
     Dates: start: 1999, end: 2007
  10. PREVACID [Suspect]
     Active Substance: LANSOPRAZOLE
     Route: 065
     Dates: start: 1999, end: 2007
  11. TUMS [Concomitant]
     Active Substance: CALCIUM CARBONATE
  12. TEMAZEPAM. [Concomitant]
     Active Substance: TEMAZEPAM
  13. NOVOLIN NOS [Concomitant]
     Active Substance: INSULIN HUMAN
  14. LACTULOSE. [Concomitant]
     Active Substance: LACTULOSE
  15. RENAGEL [Concomitant]
     Active Substance: SEVELAMER HYDROCHLORIDE
  16. NOVOLIN NOS [Concomitant]
     Active Substance: INSULIN HUMAN
  17. ZANTAC [Concomitant]
     Active Substance: RANITIDINE HYDROCHLORIDE
  18. ULTRAM [Concomitant]
     Active Substance: TRAMADOL HYDROCHLORIDE
  19. PROPULSID [Concomitant]
     Active Substance: CISAPRIDE
  20. ACIPHEX [Suspect]
     Active Substance: RABEPRAZOLE SODIUM
     Route: 065
  21. ACIPHEX [Suspect]
     Active Substance: RABEPRAZOLE SODIUM
     Dosage: 20.0MG UNKNOWN
     Route: 048
     Dates: start: 20050111
  22. METOCLOPRAMIDE. [Concomitant]
     Active Substance: METOCLOPRAMIDE
  23. ELAVIL [Concomitant]
     Active Substance: AMITRIPTYLINE HYDROCHLORIDE
  24. MAALOX ANTACID [Concomitant]
     Active Substance: ALUMINUM HYDROXIDE\DIMETHICONE\MAGNESIUM HYDROXIDE
  25. PROTONIX [Suspect]
     Active Substance: PANTOPRAZOLE SODIUM
     Route: 065
     Dates: start: 1999, end: 2007
  26. PROPOXY?N/APAP [Concomitant]
     Active Substance: ACETAMINOPHEN\PROPOXYPHENE HYDROCHLORIDE
  27. HYDRALAZINE [Concomitant]
     Active Substance: HYDRALAZINE HYDROCHLORIDE
  28. PHENERGAN [Concomitant]
     Active Substance: PROMETHAZINE HYDROCHLORIDE
  29. PRILOSEC [Suspect]
     Active Substance: OMEPRAZOLE MAGNESIUM
     Route: 048
     Dates: start: 1999, end: 2007
  30. ASPIRIN. [Concomitant]
     Active Substance: ASPIRIN
     Indication: PAIN
  31. LEVAQUIN [Concomitant]
     Active Substance: LEVOFLOXACIN
  32. REGLAN [Concomitant]
     Active Substance: METOCLOPRAMIDE HYDROCHLORIDE
  33. PRILOSEC [Suspect]
     Active Substance: OMEPRAZOLE MAGNESIUM
     Dosage: GENERIC
     Route: 065
  34. HUMULIN NOS [Concomitant]
     Active Substance: INSULIN HUMAN
  35. NEPHRO VITE RX [Concomitant]
     Active Substance: ASCORBIC ACID\BIOTIN\CALCIUM PANTOTHENATE\CYANOCOBALAMIN\FOLIC ACID\NIACINAMIDE\PYRIDOXINE HYDROCHLORIDE\RIBOFLAVIN\THIAMINE MONONITRATE
  36. NEXIUM [Suspect]
     Active Substance: ESOMEPRAZOLE MAGNESIUM
     Route: 048
     Dates: start: 1999, end: 2007
  37. PROTONIX [Suspect]
     Active Substance: PANTOPRAZOLE SODIUM
     Dosage: 40.0MG UNKNOWN
     Route: 048
     Dates: start: 20050721
  38. NORVASC [Concomitant]
     Active Substance: AMLODIPINE BESYLATE
  39. XYLOCAINE [Concomitant]
     Active Substance: LIDOCAINE HYDROCHLORIDE
  40. LOVENOX [Concomitant]
     Active Substance: ENOXAPARIN SODIUM
  41. CARDURA [Concomitant]
     Active Substance: DOXAZOSIN MESYLATE
  42. TOPROL XL [Concomitant]
     Active Substance: METOPROLOL SUCCINATE
  43. MIRTAZAPINE. [Concomitant]
     Active Substance: MIRTAZAPINE
  44. AMITRIPTYLINE HCL [Concomitant]
     Active Substance: AMITRIPTYLINE

REACTIONS (4)
  - Metabolic acidosis [Fatal]
  - Renal failure [Unknown]
  - End stage renal disease [Fatal]
  - Chronic kidney disease [Not Recovered/Not Resolved]

NARRATIVE: CASE EVENT DATE: 20020102
